FAERS Safety Report 12902150 (Version 4)
Quarter: 2017Q3

REPORT INFORMATION
  Report Type: Spontaneous
  Country: US (occurrence: US)
  Receive Date: 20161102
  Receipt Date: 20170818
  Transmission Date: 20171127
  Serious: No
  Sender: FDA-Public Use
  Company Number: US-PFIZER INC-2016505884

PATIENT
  Age: 73 Year
  Sex: Female
  Weight: 49 kg

DRUGS (8)
  1. LIPITOR [Suspect]
     Active Substance: ATORVASTATIN CALCIUM
     Indication: BLOOD TRIGLYCERIDES
  2. LIPITOR [Suspect]
     Active Substance: ATORVASTATIN CALCIUM
     Indication: BLOOD CHOLESTEROL
  3. LIPITOR [Suspect]
     Active Substance: ATORVASTATIN CALCIUM
     Indication: BLOOD TRIGLYCERIDES INCREASED
  4. ATORVASTATIN CALCIUM. [Suspect]
     Active Substance: ATORVASTATIN CALCIUM
     Indication: BLOOD CHOLESTEROL
     Dosage: 10 MG, 1X/DAY, (EVERY NIGHT AT BEDTIME)
     Route: 048
     Dates: start: 2016
  5. LIPITOR [Suspect]
     Active Substance: ATORVASTATIN CALCIUM
     Indication: BLOOD CHOLESTEROL ABNORMAL
     Dosage: 10 MG, 1X/DAY(ONCE AT NIGHT)
     Route: 048
     Dates: end: 2016
  6. ATORVASTATIN CALCIUM. [Suspect]
     Active Substance: ATORVASTATIN CALCIUM
     Indication: BLOOD TRIGLYCERIDES
  7. DIAZEPAM. [Concomitant]
     Active Substance: DIAZEPAM
     Indication: NERVE INJURY
     Dosage: 5 MG, AS NEEDED, (TWICE A DAY)
     Route: 048
  8. VALIUM [Concomitant]
     Active Substance: DIAZEPAM
     Indication: ANXIETY
     Dosage: 5 MG, AS NEEDED (ONCE OR TWICE A DAY)

REACTIONS (10)
  - Hepatic enzyme increased [Unknown]
  - Blood cholesterol increased [Unknown]
  - Arthritis [Unknown]
  - Hyperparathyroidism [Unknown]
  - Fracture [Unknown]
  - Osteoporosis [Unknown]
  - Scoliosis [Unknown]
  - Visual impairment [Unknown]
  - Hypercalcaemia [Unknown]
  - Body height decreased [Unknown]

NARRATIVE: CASE EVENT DATE: 2011
